FAERS Safety Report 4977145-0 (Version None)
Quarter: 2006Q2

REPORT INFORMATION
  Report Type: 
  Country: None (occurrence: None)
  Receive Date: 20060413
  Receipt Date: 20060329
  Transmission Date: 20061013
  Serious: Yes (Hospitalization)
  Sender: FDA-Public Use
  Company Number: 06-000319

PATIENT
  Age: 63 Year
  Sex: Male

DRUGS (5)
  1. DOVONEX [Suspect]
     Indication: PSORIASIS
     Dosage: 0.005%, QD, TOPICAL
     Route: 061
     Dates: start: 19960401
  2. FLUTICASONE PROPIONATE [Suspect]
     Dosage: QD, TOPICAL
     Route: 061
     Dates: start: 19960401
  3. ATENOLOL [Concomitant]
  4. LANSOPRAZOLE [Concomitant]
  5. CISAPRIDE (CISAPRIDE) [Concomitant]

REACTIONS (6)
  - CONDITION AGGRAVATED [None]
  - DERMATITIS PSORIASIFORM [None]
  - ERYTHEMA [None]
  - PUSTULAR PSORIASIS [None]
  - RASH [None]
  - THERAPY NON-RESPONDER [None]
